FAERS Safety Report 15052068 (Version 2)
Quarter: 2018Q3

REPORT INFORMATION
  Report Type: Spontaneous
  Country: US (occurrence: US)
  Receive Date: 20180622
  Receipt Date: 20180706
  Transmission Date: 20181010
  Serious: Yes (Disabling)
  Sender: FDA-Public Use
  Company Number: US-OTSUKA-2018_016563

PATIENT
  Sex: Male

DRUGS (2)
  1. ABILIFY [Suspect]
     Active Substance: ARIPIPRAZOLE
     Indication: PERSONALITY DISORDER
  2. ABILIFY [Suspect]
     Active Substance: ARIPIPRAZOLE
     Indication: POST-TRAUMATIC STRESS DISORDER
     Dosage: 5 MG, QD
     Route: 065
     Dates: start: 201201, end: 201801

REACTIONS (12)
  - Condition aggravated [Unknown]
  - Economic problem [Unknown]
  - Pain [Unknown]
  - Anxiety [Unknown]
  - Injury [Unknown]
  - Product use in unapproved indication [Unknown]
  - Emotional distress [Unknown]
  - Compulsive sexual behaviour [Recovered/Resolved]
  - Sexual dysfunction [Recovered/Resolved]
  - Disability [Unknown]
  - Anhedonia [Unknown]
  - Gambling disorder [Recovered/Resolved]
